FAERS Safety Report 6116082-5 (Version None)
Quarter: 2009Q1

REPORT INFORMATION
  Report Type: 
  Country: None (occurrence: None)
  Receive Date: 20090314
  Receipt Date: 20081204
  Transmission Date: 20090719
  Serious: No
  Sender: FDA-Public Use
  Company Number: US-ABBOTT-08P-163-0489026-00

PATIENT
  Sex: Male
  Weight: 83.99 kg

DRUGS (4)
  1. HUMIRA [Suspect]
     Indication: PSORIATIC ARTHROPATHY
     Dosage: UNSURE OF STRENGTH
     Route: 058
     Dates: start: 20080501
  2. HUMIRA [Suspect]
     Indication: PSORIASIS
  3. RIBAVIRIN [Concomitant]
     Indication: HEPATITIS C
  4. INTERFERON [Concomitant]
     Indication: HEPATITIS C

REACTIONS (1)
  - PLATELET COUNT DECREASED [None]
